FAERS Safety Report 10044399 (Version 1)
Quarter: 2014Q1

REPORT INFORMATION
  Report Type: Spontaneous
  Country: FR (occurrence: FR)
  Receive Date: 20140328
  Receipt Date: 20140328
  Transmission Date: 20141002
  Serious: Yes (Hospitalization, Other)
  Sender: FDA-Public Use
  Company Number: FR-JNJFOC-20140315172

PATIENT
  Age: 26 Year
  Sex: Female

DRUGS (11)
  1. REMICADE [Suspect]
     Indication: PRODUCT USED FOR UNKNOWN INDICATION
     Route: 042
     Dates: start: 20130715, end: 20131220
  2. IMUREL [Suspect]
     Indication: PRODUCT USED FOR UNKNOWN INDICATION
     Route: 065
     Dates: start: 20130708, end: 20140125
  3. PYOSTACINE [Suspect]
     Indication: SINUSITIS
     Route: 065
     Dates: start: 20140117, end: 201401
  4. PYOSTACINE [Suspect]
     Indication: BRONCHITIS
     Route: 065
     Dates: start: 20140117, end: 201401
  5. FLAGYL [Concomitant]
     Route: 065
  6. GAVISCON NOS [Concomitant]
     Route: 065
  7. LOVENOX [Concomitant]
     Route: 065
  8. EUPANTOL [Concomitant]
     Route: 065
  9. ACUPAN [Concomitant]
     Indication: PAIN
     Route: 065
  10. PARACETAMOL [Concomitant]
     Indication: BODY TEMPERATURE
     Dosage: WHEN THE BODY TEMPERATURE UPPER THAN 38 CELSIUS
     Route: 065
  11. ONDANSETRON [Concomitant]
     Route: 065
     Dates: start: 20130715

REACTIONS (2)
  - Disseminated tuberculosis [Unknown]
  - Clostridium difficile infection [Unknown]
